FAERS Safety Report 8909776 (Version 2)
Quarter: 2012Q4

REPORT INFORMATION
  Report Type: 
  Country: JP (occurrence: JP)
  Receive Date: 20121115
  Receipt Date: 20121204
  Transmission Date: 20130627
  Serious: Yes (Other)
  Sender: FDA-Public Use
  Company Number: JP-PFIZER INC-2012285724

PATIENT
  Age: 81 Year
  Sex: Male

DRUGS (2)
  1. LYRICA [Suspect]
     Indication: LEG PAIN
     Dosage: 50 mg, 2x/day (not on the day of dialysis)
     Route: 048
  2. LYRICA [Suspect]
     Indication: PERIPHERAL NEUROPATHY NOS
     Dosage: 75 mg, 2x/day (on the day of dialysis)
     Route: 048

REACTIONS (2)
  - Dementia [Unknown]
  - Poriomania [Unknown]
